FAERS Safety Report 5380585-1 (Version None)
Quarter: 2007Q3

REPORT INFORMATION
  Report Type: 
  Country: None (occurrence: None)
  Receive Date: 20070703
  Receipt Date: 20070625
  Transmission Date: 20080115
  Serious: Yes (Life-Threatening)
  Sender: FDA-Public Use
  Company Number: 2007-160417-NL

PATIENT
  Age: 24 Year
  Sex: Male

DRUGS (1)
  1. VECURONIUM BROMIDE [Suspect]
     Indication: MUSCLE RELAXANT THERAPY

REACTIONS (2)
  - DIAPHRAGMATIC HERNIA [None]
  - HYPOVENTILATION [None]
